FAERS Safety Report 7954687-7 (Version None)
Quarter: 2011Q4

REPORT INFORMATION
  Report Type: 
  Country: None (occurrence: None)
  Receive Date: 20111202
  Receipt Date: 20111129
  Transmission Date: 20120403
  Serious: Yes (Life-Threatening, Hospitalization, Disabling)
  Sender: FDA-Public Use
  Company Number: PHHY2011CA38786

PATIENT
  Sex: Male

DRUGS (8)
  1. EXJADE [Suspect]
     Dosage: 1000-1500 MG QD
     Route: 048
  2. EXJADE [Suspect]
     Dosage: 1500 MG, QD
     Route: 048
  3. EXJADE [Suspect]
     Indication: IRON OVERLOAD
     Dosage: 1500 MG, QD
     Route: 048
     Dates: start: 20081201
  4. VITAMIN D [Concomitant]
  5. PREDNISONE TAB [Concomitant]
     Dosage: 5 MG, QOD
  6. CALCIUM [Concomitant]
  7. EXJADE [Suspect]
     Dosage: 750 MG, UNK
     Route: 048
     Dates: start: 20091117
  8. VITAMIN B-12 [Concomitant]

REACTIONS (4)
  - CEREBROVASCULAR ACCIDENT [None]
  - MEMORY IMPAIRMENT [None]
  - FALL [None]
  - WHEELCHAIR USER [None]
